FAERS Safety Report 4601996-5 (Version None)
Quarter: 2005Q2

REPORT INFORMATION
  Report Type: 
  Country: None (occurrence: None)
  Receive Date: 20050215
  Receipt Date: 20041110
  Transmission Date: 20051028
  Serious: Yes (Hospitalization, Disabling)
  Sender: FDA-Public Use
  Company Number: 358503

PATIENT
  Age: 55 Year
  Sex: Female
  Weight: 48.1 kg

DRUGS (3)
  1. PEGASYS [Suspect]
     Indication: HEPATITIS C
     Dosage: 1 PER 1 WEEK SUBCUTANEOUS
     Route: 058
     Dates: start: 20030516, end: 20040218
  2. COPEGUS [Suspect]
     Indication: HEPATITIS C
     Dosage: ORAL
     Route: 048
     Dates: start: 20030516, end: 20040218
  3. NEUPOGEN [Concomitant]

REACTIONS (8)
  - ANAEMIA [None]
  - DYSGEUSIA [None]
  - EPISTAXIS [None]
  - HAEMOLYTIC ANAEMIA [None]
  - PAROXYSMAL NOCTURNAL HAEMOGLOBINURIA [None]
  - PNEUMONITIS [None]
  - WEIGHT DECREASED [None]
  - WHITE BLOOD CELL COUNT DECREASED [None]
